FAERS Safety Report 21103121 (Version 1)
Quarter: 2022Q3

REPORT INFORMATION
  Report Type: Report from Study
  Country: US (occurrence: US)
  Receive Date: 20220720
  Receipt Date: 20220720
  Transmission Date: 20221027
  Serious: Yes (Hospitalization, Other)
  Sender: FDA-Public Use
  Company Number: US-BRISTOL-MYERS SQUIBB COMPANY-2022-064222

PATIENT
  Sex: Male
  Weight: 73.9 kg

DRUGS (1)
  1. AZACITIDINE [Suspect]
     Active Substance: AZACITIDINE
     Indication: Diffuse large B-cell lymphoma
     Dosage: TOTAL DOSE ADMINISTERED: 600 MG
     Route: 065
     Dates: start: 20220601, end: 20220603

REACTIONS (3)
  - Osteomyelitis [Not Recovered/Not Resolved]
  - Haematuria [Not Recovered/Not Resolved]
  - Confusional state [Not Recovered/Not Resolved]

NARRATIVE: CASE EVENT DATE: 20220603
